FAERS Safety Report 25632379 (Version 1)
Quarter: 2025Q3

REPORT INFORMATION
  Report Type: Spontaneous
  Country: US (occurrence: US)
  Receive Date: 20250801
  Receipt Date: 20250801
  Transmission Date: 20251021
  Serious: No
  Sender: Tarsus Pharmaceuticals
  Company Number: US-TARSUS PHARMACEUTICALS-TSP-US-2025-000661

PATIENT

DRUGS (4)
  1. XDEMVY [Suspect]
     Active Substance: LOTILANER
     Indication: Ocular demodicosis
     Dosage: 1 DROP, BID, (INSTILL 1 DROP INTO EACH  EYE TWICE A DAY)
     Route: 047
     Dates: start: 20250707
  2. PROBIOTICS NOS [Concomitant]
     Active Substance: PROBIOTICS NOS
     Indication: Product used for unknown indication
     Route: 065
  3. SODIUM BUTYRATE [Concomitant]
     Active Substance: SODIUM BUTYRATE
     Indication: Product used for unknown indication
     Route: 065
  4. LOSARTAN POTASSIUM [Concomitant]
     Active Substance: LOSARTAN POTASSIUM
     Indication: Product used for unknown indication
     Route: 065

REACTIONS (2)
  - Eye irritation [Unknown]
  - Condition aggravated [Unknown]
